FAERS Safety Report 11157691 (Version 2)
Quarter: 2015Q3

REPORT INFORMATION
  Report Type: Spontaneous
  Country: US (occurrence: US)
  Receive Date: 20150603
  Receipt Date: 20150720
  Transmission Date: 20151125
  Serious: No
  Sender: FDA-Public Use
  Company Number: US-009507513-1506USA001400

PATIENT
  Age: 76 Year
  Sex: Female

DRUGS (4)
  1. PREDISONE TEVA [Concomitant]
     Dosage: 3 MGS/ ONCE A DAY
  2. PEPCID RPD [Concomitant]
     Active Substance: FAMOTIDINE
     Dosage: 40 MG/ ONCE DAILY BED TIME
  3. JANUVIA [Suspect]
     Active Substance: SITAGLIPTIN PHOSPHATE
     Indication: DIABETES MELLITUS
     Dosage: 50 MG/ 1 PILL DAILY AT AT NIGHT TIME
     Route: 048
     Dates: start: 20150520
  4. LOSARTIN [Concomitant]
     Active Substance: LOSARTAN
     Dosage: 12.5 MG/ ONCE DAILY

REACTIONS (2)
  - Abdominal pain upper [Unknown]
  - Dyschezia [Unknown]

NARRATIVE: CASE EVENT DATE: 201505
